FAERS Safety Report 18217106 (Version 1)
Quarter: 2020Q3

REPORT INFORMATION
  Report Type: Spontaneous
  Country: GB (occurrence: GB)
  Receive Date: 20200901
  Receipt Date: 20200901
  Transmission Date: 20201103
  Serious: Yes (Disabling, Other)
  Sender: FDA-Public Use
  Company Number: GB-GLAXOSMITHKLINE-GB2020170882

PATIENT
  Age: 38 Year
  Sex: Female
  Weight: 65.31 kg

DRUGS (2)
  1. AVAMYS [Suspect]
     Active Substance: FLUTICASONE FUROATE
     Indication: SINUSITIS
     Dosage: 27.5 ?G, QD
     Route: 045
     Dates: start: 20200414, end: 20200622
  2. MOMETASONE FUROATE. [Suspect]
     Active Substance: MOMETASONE FUROATE
     Indication: SINUSITIS
     Dosage: 400 ?G, QD (REDUCE WHEN SYMPTOMS ARE CONTROL.)
     Route: 045
     Dates: start: 20200722, end: 20200725

REACTIONS (17)
  - Diplopia [Recovered/Resolved]
  - Migraine [Recovered/Resolved]
  - Back pain [Recovered/Resolved with Sequelae]
  - Pain [Unknown]
  - Chest pain [Recovered/Resolved]
  - Hypersomnia [Unknown]
  - Eye pain [Not Recovered/Not Resolved]
  - Nausea [Recovered/Resolved]
  - Polymenorrhoea [Recovered/Resolved]
  - Ocular hyperaemia [Unknown]
  - Neuralgia [Not Recovered/Not Resolved]
  - Burning sensation [Unknown]
  - Hypoaesthesia [Not Recovered/Not Resolved]
  - Rash [Unknown]
  - Fatigue [Unknown]
  - Paraesthesia [Unknown]
  - Eye pruritus [Unknown]

NARRATIVE: CASE EVENT DATE: 2020
